FAERS Safety Report 8569996-0 (Version None)
Quarter: 2012Q3

REPORT INFORMATION
  Report Type: 
  Country: None (occurrence: None)
  Receive Date: 20120803
  Receipt Date: 20120612
  Transmission Date: 20120928
  Serious: No
  Sender: FDA-Public Use
  Company Number: US-ABBOTT-12P-163-0944945-00

PATIENT
  Sex: Female
  Weight: 93.978 kg

DRUGS (2)
  1. NIASPAN [Suspect]
     Indication: BLOOD CHOLESTEROL INCREASED
     Dates: start: 20070101
  2. OMEGA [Concomitant]
     Indication: MEDICAL DIET

REACTIONS (1)
  - NAUSEA [None]
